FAERS Safety Report 22936373 (Version 5)
Quarter: 2024Q2

REPORT INFORMATION
  Report Type: Report from Study
  Country: CA (occurrence: CA)
  Receive Date: 20230912
  Receipt Date: 20240605
  Transmission Date: 20240716
  Serious: Yes (Other)
  Sender: FDA-Public Use
  Company Number: CA-TAKEDA-2022TUS069272

PATIENT
  Age: 59 Year
  Sex: Female

DRUGS (43)
  1. ICATIBANT [Suspect]
     Active Substance: ICATIBANT ACETATE
     Indication: Hereditary angioedema with normal C1 esterase inhibitor
     Dosage: 1 DOSAGE FORM
     Route: 058
     Dates: start: 20210628
  2. ICATIBANT [Suspect]
     Active Substance: ICATIBANT ACETATE
     Indication: Hereditary angioedema with normal C1 esterase inhibitor
     Dosage: 1 DOSAGE FORM
     Route: 058
     Dates: start: 20210628
  3. ICATIBANT [Suspect]
     Active Substance: ICATIBANT ACETATE
     Dosage: UNK
     Route: 058
     Dates: start: 20230301
  4. ICATIBANT [Suspect]
     Active Substance: ICATIBANT ACETATE
     Dosage: UNK
     Route: 058
     Dates: start: 20230301
  5. ICATIBANT [Suspect]
     Active Substance: ICATIBANT ACETATE
     Dosage: 30 MILLIGRAM
     Route: 058
  6. ICATIBANT [Suspect]
     Active Substance: ICATIBANT ACETATE
     Dosage: 30 MILLIGRAM
     Route: 058
  7. ICATIBANT [Suspect]
     Active Substance: ICATIBANT ACETATE
     Dosage: UNK
     Route: 050
  8. ICATIBANT [Suspect]
     Active Substance: ICATIBANT ACETATE
     Dosage: UNK
     Route: 050
  9. ICATIBANT [Suspect]
     Active Substance: ICATIBANT ACETATE
     Dosage: UNK
     Route: 050
  10. ICATIBANT [Suspect]
     Active Substance: ICATIBANT ACETATE
     Dosage: UNK
     Route: 050
  11. ICATIBANT [Suspect]
     Active Substance: ICATIBANT ACETATE
     Dosage: UNK
     Route: 058
  12. ICATIBANT [Suspect]
     Active Substance: ICATIBANT ACETATE
     Dosage: UNK
     Route: 058
  13. ICATIBANT [Suspect]
     Active Substance: ICATIBANT ACETATE
     Dosage: UNK
     Route: 058
  14. ICATIBANT [Suspect]
     Active Substance: ICATIBANT ACETATE
     Dosage: UNK
     Route: 058
  15. ICATIBANT [Suspect]
     Active Substance: ICATIBANT ACETATE
     Dosage: UNK
     Route: 058
  16. ICATIBANT [Suspect]
     Active Substance: ICATIBANT ACETATE
     Dosage: UNK
     Route: 058
  17. TAKHZYRO [Concomitant]
     Active Substance: LANADELUMAB-FLYO
     Dosage: 300 MILLIGRAM, Q2WEEKS
     Route: 065
     Dates: start: 20211127
  18. TAKHZYRO [Concomitant]
     Active Substance: LANADELUMAB-FLYO
     Dosage: 1 DOSAGE FORM, Q2WEEKS
     Route: 058
  19. CALCIUM CITRATE [Concomitant]
     Active Substance: CALCIUM CITRATE
     Dosage: 1890 MILLIGRAM
     Route: 048
  20. CORTEF [Concomitant]
     Active Substance: HYDROCORTISONE
     Dosage: 10 MILLIGRAM, QD
     Route: 048
  21. CORTEF [Concomitant]
     Active Substance: HYDROCORTISONE
     Dosage: 5 MILLIGRAM, BID
     Route: 048
  22. CORTEF [Concomitant]
     Active Substance: HYDROCORTISONE
     Dosage: 2.5 MILLIGRAM, QD
     Route: 048
  23. SOLU-CORTEF [Concomitant]
     Active Substance: HYDROCORTISONE SODIUM SUCCINATE
     Dosage: UNK
     Route: 065
  24. SPIRONOLACTONE [Concomitant]
     Active Substance: SPIRONOLACTONE
     Dosage: 12.5 MILLIGRAM, BID
     Route: 065
  25. MIRABEGRON [Concomitant]
     Active Substance: MIRABEGRON
     Dosage: 50 MILLIGRAM, QD
     Route: 065
  26. METOLAZONE [Concomitant]
     Active Substance: METOLAZONE
     Dosage: 2.5 MILLIGRAM, Q72H
     Route: 065
  27. DYMISTA [Concomitant]
     Active Substance: AZELASTINE HYDROCHLORIDE\FLUTICASONE PROPIONATE
     Dosage: UNK, BID
     Route: 045
  28. KETOTIFEN [Concomitant]
     Active Substance: KETOTIFEN
     Dosage: 4 MILLIGRAM, TID
     Route: 065
  29. KETOTIFEN [Concomitant]
     Active Substance: KETOTIFEN
     Dosage: 4 MILLIGRAM, BID
  30. LABIXTEN [Concomitant]
     Dosage: 40 MILLIGRAM, BID
     Route: 065
  31. LASIX [Concomitant]
     Active Substance: FUROSEMIDE
     Dosage: 40 MILLIGRAM, BID
     Route: 065
  32. BROMAZEPAM [Concomitant]
     Active Substance: BROMAZEPAM
     Dosage: 2.5 MILLIGRAM, QD
     Route: 065
  33. BROMAZEPAM [Concomitant]
     Active Substance: BROMAZEPAM
     Dosage: 3 MILLIGRAM, QD
     Route: 065
  34. CROMOLYN SODIUM [Concomitant]
     Active Substance: CROMOLYN SODIUM
     Dosage: 300 MILLIGRAM, QID
     Route: 065
  35. RABEPRAZOLE SODIUM [Concomitant]
     Active Substance: RABEPRAZOLE SODIUM
     Dosage: 20 MILLIGRAM, BID
     Route: 065
  36. PLAQUENIL [Concomitant]
     Active Substance: HYDROXYCHLOROQUINE SULFATE
     Dosage: 400 MILLIGRAM, QD
     Route: 065
  37. KCL [Concomitant]
     Active Substance: POTASSIUM CHLORIDE
     Dosage: 30 MILLILITER, TID
     Route: 065
  38. SINGULAIR [Concomitant]
     Active Substance: MONTELUKAST SODIUM
     Dosage: 10 MILLIGRAM, BID
     Route: 065
  39. XYZAL [Concomitant]
     Active Substance: LEVOCETIRIZINE DIHYDROCHLORIDE
     Dosage: 5 MILLIGRAM, QD
     Route: 065
  40. ZYRTEC [Concomitant]
     Active Substance: CETIRIZINE HYDROCHLORIDE
     Dosage: 10 MILLIGRAM, QD
     Route: 065
  41. PRASTERONE [Concomitant]
     Active Substance: PRASTERONE
     Dosage: 25 MILLIGRAM, QD
     Route: 065
  42. OMEGA 3 [Concomitant]
     Active Substance: CAPSAICIN
     Dosage: UNK
     Route: 065
  43. FAMOTIDINE [Concomitant]
     Active Substance: FAMOTIDINE
     Dosage: 20 MILLIGRAM, BID
     Route: 065

REACTIONS (29)
  - Pneumonia [Recovering/Resolving]
  - Mast cell activation syndrome [Not Recovered/Not Resolved]
  - Anaphylactic reaction [Not Recovered/Not Resolved]
  - Asthenia [Recovered/Resolved]
  - Dyspnoea [Recovered/Resolved]
  - Restless legs syndrome [Unknown]
  - Lung disorder [Recovering/Resolving]
  - Mastocytosis [Not Recovered/Not Resolved]
  - Wheezing [Not Recovered/Not Resolved]
  - Cough [Recovering/Resolving]
  - Sinus disorder [Recovering/Resolving]
  - Malaise [Unknown]
  - Influenza [Recovered/Resolved]
  - Pain in extremity [Recovered/Resolved]
  - Back pain [Recovered/Resolved]
  - Chills [Recovered/Resolved]
  - Pain in jaw [Recovered/Resolved]
  - Tinnitus [Recovered/Resolved]
  - Poor quality sleep [Recovered/Resolved]
  - Neck pain [Recovered/Resolved]
  - Peripheral swelling [Unknown]
  - Joint swelling [Unknown]
  - Tenosynovitis [Unknown]
  - Tendon disorder [Unknown]
  - Chest pain [Recovered/Resolved]
  - Urticaria cholinergic [Not Recovered/Not Resolved]
  - Headache [Recovered/Resolved]
  - Nausea [Recovered/Resolved]
  - Off label use [Unknown]

NARRATIVE: CASE EVENT DATE: 20210628
